FAERS Safety Report 23068463 (Version 1)
Quarter: 2023Q4

REPORT INFORMATION
  Report Type: Spontaneous
  Country: KR (occurrence: KR)
  Receive Date: 20231016
  Receipt Date: 20231016
  Transmission Date: 20240110
  Serious: Yes (Other)
  Sender: FDA-Public Use
  Company Number: KR-MYLANLABS-2023M1107408

PATIENT
  Sex: Female

DRUGS (2)
  1. LIPITOR [Suspect]
     Active Substance: ATORVASTATIN CALCIUM
     Indication: Product used for unknown indication
     Dosage: 1 DOSAGE FORM, QD
     Route: 065
     Dates: start: 20220711, end: 20220808
  2. AMILORIDE HYDROCHLORIDE [Concomitant]
     Active Substance: AMILORIDE HYDROCHLORIDE
     Dosage: UNK
     Route: 065
     Dates: start: 20220711, end: 20220711

REACTIONS (5)
  - Bradycardia [Recovered/Resolved]
  - Hypotension [Recovered/Resolved]
  - Eye oedema [Recovered/Resolved]
  - Oedema peripheral [Recovered/Resolved]
  - Chest discomfort [Recovered/Resolved]
